FAERS Safety Report 17884291 (Version 1)
Quarter: 2020Q2

REPORT INFORMATION
  Report Type: Spontaneous
  Country: FR (occurrence: FR)
  Receive Date: 20200611
  Receipt Date: 20200611
  Transmission Date: 20200714
  Serious: Yes (Other)
  Sender: FDA-Public Use
  Company Number: FR-ROCHE-2616501

PATIENT
  Age: 26 Year
  Sex: Female

DRUGS (2)
  1. TERCIAN [CYAMEMAZINE] [Suspect]
     Active Substance: CYAMEMAZINE
     Indication: SUICIDE ATTEMPT
     Route: 048
     Dates: start: 20171202, end: 20171202
  2. VALIUM [Suspect]
     Active Substance: DIAZEPAM
     Indication: SUICIDE ATTEMPT
     Route: 048
     Dates: start: 20171202, end: 20171202

REACTIONS (3)
  - Depressed level of consciousness [Recovered/Resolved]
  - Miosis [Recovered/Resolved]
  - Toxicity to various agents [Recovered/Resolved]

NARRATIVE: CASE EVENT DATE: 20171202
